FAERS Safety Report 19018600 (Version 2)
Quarter: 2021Q2

REPORT INFORMATION
  Report Type: Report from Study
  Country: DE (occurrence: DE)
  Receive Date: 20210317
  Receipt Date: 20210416
  Transmission Date: 20210717
  Serious: Yes (Death, Other)
  Sender: FDA-Public Use
  Company Number: DE-CELGENEUS-DEU-20210302746

PATIENT
  Age: 66 Year
  Sex: Male

DRUGS (5)
  1. LENALIDOMIDE [Suspect]
     Active Substance: LENALIDOMIDE
     Indication: PLASMA CELL MYELOMA
     Route: 048
     Dates: start: 20170210, end: 20190416
  2. ELOTUZUMAB. [Suspect]
     Active Substance: ELOTUZUMAB
     Indication: PLASMA CELL MYELOMA
     Route: 041
     Dates: start: 20171101, end: 20190320
  3. DEXAMETHASONE. [Suspect]
     Active Substance: DEXAMETHASONE
     Indication: PLASMA CELL MYELOMA
     Route: 065
     Dates: start: 20170210, end: 20190320
  4. BORTEZOMIB. [Suspect]
     Active Substance: BORTEZOMIB
     Indication: PLASMA CELL MYELOMA
     Route: 058
     Dates: start: 20170210, end: 20171206
  5. GRANOCYTE [Suspect]
     Active Substance: LENOGRASTIM
     Indication: PLASMA CELL MYELOMA
     Dosage: 34 MILLION/IU/ML
     Route: 042
     Dates: start: 20170610, end: 20170612

REACTIONS (1)
  - Intestinal adenocarcinoma [Fatal]

NARRATIVE: CASE EVENT DATE: 20210208
